FAERS Safety Report 17973940 (Version 1)
Quarter: 2020Q3

REPORT INFORMATION
  Report Type: Spontaneous
  Country: CN (occurrence: CN)
  Receive Date: 20200702
  Receipt Date: 20200702
  Transmission Date: 20201103
  Serious: Yes (Other)
  Sender: FDA-Public Use
  Company Number: CN-PFIZER INC-2020252435

PATIENT
  Age: 35 Year
  Sex: Female
  Weight: 57 kg

DRUGS (4)
  1. FEN LE [HYDROXYCHLOROQUINE SULFATE] [Suspect]
     Active Substance: HYDROXYCHLOROQUINE SULFATE
     Indication: ABORTION SPONTANEOUS
     Dosage: 0.1 G, 3X/DAY
     Route: 048
     Dates: start: 20200619, end: 20200624
  2. MEDROL [Suspect]
     Active Substance: METHYLPREDNISOLONE
     Indication: HABITUAL ABORTION
     Dosage: 4 MG, 1X/DAY
     Route: 048
     Dates: start: 20200619, end: 20200624
  3. CLEXANE [Suspect]
     Active Substance: ENOXAPARIN SODIUM
     Indication: TOCOLYSIS
  4. CLEXANE [Suspect]
     Active Substance: ENOXAPARIN SODIUM
     Indication: ABORTION SPONTANEOUS
     Dosage: 0.4 ML, 1X/DAY
     Route: 058
     Dates: start: 20200619, end: 20200624

REACTIONS (9)
  - Pruritus [Recovering/Resolving]
  - Rash papular [Recovering/Resolving]
  - Dermatitis [Recovering/Resolving]
  - Off label use [Unknown]
  - Drug hypersensitivity [Recovering/Resolving]
  - Product use in unapproved indication [Unknown]
  - Maternal exposure during pregnancy [Unknown]
  - Panniculitis [Recovering/Resolving]
  - Rash [Recovering/Resolving]

NARRATIVE: CASE EVENT DATE: 20200619
